FAERS Safety Report 7069585-3 (Version None)
Quarter: 2010Q4

REPORT INFORMATION
  Report Type: 
  Country: None (occurrence: None)
  Receive Date: 20101028
  Receipt Date: 20100202
  Transmission Date: 20110411
  Serious: Yes (Other)
  Sender: FDA-Public Use
  Company Number: US-WYE-H13307610

PATIENT
  Sex: Female

DRUGS (6)
  1. CORDARONE [Suspect]
     Indication: ATRIAL FIBRILLATION
     Route: 048
     Dates: start: 20080101
  2. FISH OIL, HYDROGENATED [Concomitant]
  3. ASPIRIN [Concomitant]
  4. VITAMIN D [Concomitant]
  5. SIMVASTATIN [Concomitant]
  6. DARVOCET-N 100 [Concomitant]

REACTIONS (2)
  - ASPERGILLOSIS [None]
  - PULMONARY TOXICITY [None]
